FAERS Safety Report 9061797 (Version 1)
Quarter: 2013Q1

REPORT INFORMATION
  Report Type: Spontaneous
  Country: US (occurrence: None)
  Receive Date: 20130118
  Receipt Date: 20130118
  Transmission Date: 20140127
  Serious: Yes (Death)
  Sender: FDA-Public Use
  Company Number: DSA_59965_2012

PATIENT
  Age: 78 Year
  Sex: Female

DRUGS (2)
  1. XENAZINE 25 MG (NOT SPECIFIED) [Suspect]
     Indication: HUNTINGTON^S DISEASE
     Dosage: (25 MG  TID  ORAL)?(08/21/2012  TO UNKNOWN)
     Route: 048
     Dates: start: 20120821
  2. CITALOPRAM [Suspect]
     Indication: PRODUCT USED FOR UNKNOWN INDICATION
     Dosage: (DF)?(UNKNOWN)

REACTIONS (1)
  - Drug interaction [None]
